FAERS Safety Report 9515185 (Version 2)
Quarter: 2013Q3

REPORT INFORMATION
  Report Type: Spontaneous
  Country: US (occurrence: US)
  Receive Date: 20130911
  Receipt Date: 20130925
  Transmission Date: 20140515
  Serious: Yes (Disabling)
  Sender: FDA-Public Use
  Company Number: US-PERRIGO-13US009158

PATIENT
  Sex: Male

DRUGS (2)
  1. NITETIME FREE LIQGL 977 [Suspect]
     Indication: PRODUCT USED FOR UNKNOWN INDICATION
     Dosage: UNSPECIFIED DOSE, ONCE
     Route: 048
     Dates: start: 2013, end: 2013
  2. MONSTER DRINK [Suspect]
     Indication: PRODUCT USED FOR UNKNOWN INDICATION
     Dosage: ONE CAN, ONCE
     Route: 048
     Dates: start: 2013, end: 2013

REACTIONS (1)
  - Drug screen positive [Unknown]
